FAERS Safety Report 4700166-X (Version None)
Quarter: 2005Q2

REPORT INFORMATION
  Report Type: 
  Country: None (occurrence: None)
  Receive Date: 20050627
  Receipt Date: 20050613
  Transmission Date: 20051028
  Serious: Yes (Other)
  Sender: FDA-Public Use
  Company Number: NL-JNJFOC-20050600101

PATIENT
  Sex: Female

DRUGS (16)
  1. REMICADE [Suspect]
     Route: 042
  2. REMICADE [Suspect]
     Route: 042
  3. REMICADE [Suspect]
     Indication: CROHN'S DISEASE
     Dosage: 3 INFUSIONS
     Route: 042
  4. ZOVIRAX [Concomitant]
     Indication: HERPES ZOSTER
     Route: 065
  5. IMURAN [Concomitant]
     Route: 065
  6. ASACOL [Concomitant]
     Route: 065
  7. CALCICHEW [Concomitant]
     Indication: OSTEOPOROSIS PROPHYLAXIS
     Route: 065
  8. MULTIVITAMINES [Concomitant]
     Route: 065
  9. MULTIVITAMINES [Concomitant]
     Route: 065
  10. MULTIVITAMINES [Concomitant]
     Route: 065
  11. MULTIVITAMINES [Concomitant]
     Route: 065
  12. MULTIVITAMINES [Concomitant]
     Route: 065
  13. MULTIVITAMINES [Concomitant]
     Route: 065
  14. MULTIVITAMINES [Concomitant]
     Route: 065
  15. MULTIVITAMINES [Concomitant]
     Route: 065
  16. FISH OILS [Concomitant]
     Route: 065

REACTIONS (1)
  - MUSCULAR WEAKNESS [None]
